FAERS Safety Report 11050782 (Version 1)
Quarter: 2015Q2

REPORT INFORMATION
  Report Type: Spontaneous
  Country: FR (occurrence: FR)
  Receive Date: 20150421
  Receipt Date: 20150421
  Transmission Date: 20150821
  Serious: Yes (Other)
  Sender: FDA-Public Use
  Company Number: FR-AMGEN-FRASP2015037394

PATIENT
  Age: 50 Year
  Sex: Female

DRUGS (4)
  1. MIMPARA [Suspect]
     Active Substance: CINACALCET HYDROCHLORIDE
     Indication: HYPERPARATHYROIDISM
     Dosage: 60 MG, QD
     Route: 065
  2. TACROLIMUS. [Concomitant]
     Active Substance: TACROLIMUS
     Dosage: 8-12NG/ML, UNK
  3. SEVELAMER [Concomitant]
     Active Substance: SEVELAMER
     Dosage: 1600 MG/D, UNK
  4. MYCOPHENOLATE MOFETIL. [Concomitant]
     Active Substance: MYCOPHENOLATE MOFETIL
     Dosage: 1 G, BID

REACTIONS (3)
  - Hypercalciuria [Unknown]
  - Nephrocalcinosis [Unknown]
  - Hyperphosphaturia [Unknown]
